FAERS Safety Report 18056649 (Version 2)
Quarter: 2020Q4

REPORT INFORMATION
  Report Type: Spontaneous
  Country: DE (occurrence: DE)
  Receive Date: 20200723
  Receipt Date: 20201014
  Transmission Date: 20210113
  Serious: Yes (Hospitalization)
  Sender: FDA-Public Use
  Company Number: DE-BIOGEN-2020BI00901578

PATIENT
  Age: 2 Year
  Sex: Female
  Weight: 10.4 kg

DRUGS (3)
  1. VITAMIN D [Concomitant]
     Active Substance: VITAMIN D NOS
     Indication: PRODUCT USED FOR UNKNOWN INDICATION
     Route: 065
     Dates: start: 201806
  2. VIANI MITE [Concomitant]
     Active Substance: FLUTICASONE PROPIONATE\SALMETEROL XINAFOATE
     Indication: PRODUCT USED FOR UNKNOWN INDICATION
     Dosage: VIANI MITE 25/125 MICROGRAM ONE PUFF TWICE DAILY SINCE DEC 2018.
     Route: 065
     Dates: start: 201812
  3. SPINRAZA [Suspect]
     Active Substance: NUSINERSEN
     Indication: SPINAL MUSCULAR ATROPHY
     Route: 037

REACTIONS (2)
  - Acute respiratory failure [Recovered/Resolved]
  - Food refusal [Recovered/Resolved]

NARRATIVE: CASE EVENT DATE: 20200321
